FAERS Safety Report 9231164 (Version 3)
Quarter: 2013Q2

REPORT INFORMATION
  Report Type: Spontaneous
  Country: GB (occurrence: GB)
  Receive Date: 20130415
  Receipt Date: 20130523
  Transmission Date: 20140414
  Serious: Yes (Hospitalization)
  Sender: FDA-Public Use
  Company Number: GB-NOVOPROD-374860

PATIENT
  Age: 73 Year
  Sex: Male
  Weight: 64 kg

DRUGS (17)
  1. NOVOMIX 30 FLEXPEN [Suspect]
     Indication: TYPE 2 DIABETES MELLITUS
     Dosage: 12 IU, BID
     Route: 058
     Dates: start: 20130327, end: 20130402
  2. NOVOMIX 30 FLEXPEN [Suspect]
     Dosage: UNK
     Route: 058
  3. ATORVASTATIN [Concomitant]
     Dosage: 10 MG, QD
  4. RAMIPRIL [Concomitant]
     Dosage: 2.5 MG, QD
  5. AMLODIPIN                          /00972401/ [Concomitant]
     Dosage: 5 G TABS
  6. OMEPRAZOLE [Concomitant]
     Dosage: 20 G, QD
  7. FERROUS SULPHATE                   /00023503/ [Concomitant]
     Dosage: 200 MG, QD
  8. TAMSULOSIN [Concomitant]
     Dosage: 400 MG, QD
  9. ASPIRIN DISPER [Concomitant]
     Dosage: 75 UNK, UNK
  10. DOXAZOSIN                          /00639302/ [Concomitant]
     Dosage: 4 MG, QD
  11. SODIUM BICARBONATE [Concomitant]
     Dosage: 500 G
  12. DORZOLAMIDE [Concomitant]
  13. TADALAFIL [Concomitant]
     Dosage: 20 G
  14. BISOPROLOL [Concomitant]
     Dosage: 2.5 MG, QD
  15. FURUSEMIDE [Concomitant]
     Dosage: 40 G
  16. METFORMIN [Concomitant]
     Dosage: 500 G
  17. TIMOLOL [Concomitant]

REACTIONS (4)
  - Product colour issue [Recovering/Resolving]
  - Infection [Recovering/Resolving]
  - Diarrhoea [Recovering/Resolving]
  - Blood glucose increased [Recovering/Resolving]
